FAERS Safety Report 4939782-9 (Version None)
Quarter: 2006Q1

REPORT INFORMATION
  Report Type: 
  Country: None (occurrence: None)
  Receive Date: 20060310
  Receipt Date: 20060303
  Transmission Date: 20060701
  Serious: Yes (Hospitalization)
  Sender: FDA-Public Use
  Company Number: GB-JNJFOC-20060301603

PATIENT
  Age: 59 Year
  Sex: Male

DRUGS (6)
  1. IBUPROFEN [Suspect]
     Indication: TOOTHACHE
     Route: 048
  2. ACETAMINOPHEN [Suspect]
     Route: 048
  3. ACETAMINOPHEN [Suspect]
     Indication: TOOTHACHE
     Route: 048
  4. ASPIRIN [Suspect]
     Indication: TOOTHACHE
     Route: 048
  5. ADALAT [Concomitant]
     Indication: HYPERTENSION
     Dosage: ^LA^ 20 MG
     Route: 048
  6. RAMIPRIL [Concomitant]
     Indication: HYPERTENSION
     Route: 048

REACTIONS (6)
  - DIZZINESS [None]
  - FEELING HOT [None]
  - HAEMATEMESIS [None]
  - HYPERHIDROSIS [None]
  - PALLOR [None]
  - TREMOR [None]
